FAERS Safety Report 7920216-7 (Version None)
Quarter: 2011Q4

REPORT INFORMATION
  Report Type: 
  Country: None (occurrence: None)
  Receive Date: 20111117
  Receipt Date: 20111117
  Transmission Date: 20120403
  Serious: Yes (Other)
  Sender: FDA-Public Use
  Company Number: US-PFIZER INC-2011279850

PATIENT
  Sex: Male
  Weight: 100 kg

DRUGS (1)
  1. GEODON [Suspect]
     Indication: BIPOLAR DISORDER
     Dosage: 60 MG, 2X/DAY
     Route: 048
     Dates: start: 20111112

REACTIONS (8)
  - INSOMNIA [None]
  - DYSPNOEA [None]
  - PROTRUSION TONGUE [None]
  - CONVULSION [None]
  - SWOLLEN TONGUE [None]
  - HYPERSENSITIVITY [None]
  - BURNING SENSATION [None]
  - THROAT TIGHTNESS [None]
